FAERS Safety Report 13579299 (Version 1)
Quarter: 2017Q2

REPORT INFORMATION
  Report Type: Spontaneous
  Country: QA (occurrence: QA)
  Receive Date: 20170525
  Receipt Date: 20170525
  Transmission Date: 20170830
  Serious: Yes (Other)
  Sender: FDA-Public Use
  Company Number: QA-BRISTOL-MYERS SQUIBB COMPANY-BMS-2017-043692

PATIENT
  Sex: Female

DRUGS (1)
  1. NIVOLUMAB [Suspect]
     Active Substance: NIVOLUMAB
     Indication: RENAL CELL CARCINOMA
     Dosage: UNK
     Route: 065

REACTIONS (4)
  - Cardiac failure [Recovering/Resolving]
  - Renal impairment [Recovering/Resolving]
  - Haematuria [Recovering/Resolving]
  - Blood lactate dehydrogenase increased [Recovering/Resolving]
